FAERS Safety Report 10885081 (Version 1)
Quarter: 2015Q1

REPORT INFORMATION
  Report Type: Spontaneous
  Country: DE (occurrence: None)
  Receive Date: 20150227
  Receipt Date: 20150227
  Transmission Date: 20150721
  Serious: Yes (Other)
  Sender: FDA-Public Use
  Company Number: 2015-10664

PATIENT
  Age: 66 Year
  Sex: Male
  Weight: 80 kg

DRUGS (6)
  1. ALIVIAPRES (DORZOLAMIDE HYDROCHLORIDE, TIMOLOL MALEATE) [Concomitant]
  2. EFEROX JOD (LEVOTHYROXINE SODIUM, POTASSIUM IODIDE) [Concomitant]
  3. OMEPRAZOL [Concomitant]
     Active Substance: OMEPRAZOLE
  4. LATANOPROST. [Concomitant]
     Active Substance: LATANOPROST
  5. EYLEA [Suspect]
     Active Substance: AFLIBERCEPT
     Indication: PRODUCT USED FOR UNKNOWN INDICATION
     Dosage: TOTAL OF 7 INJECTIONS OF EYLEA
     Dates: start: 201401, end: 201501
  6. IRBESARTAN (IRBESARTAN) [Concomitant]
     Active Substance: IRBESARTAN

REACTIONS (2)
  - Platelet count decreased [None]
  - Inappropriate schedule of drug administration [None]
